FAERS Safety Report 4613362-7 (Version None)
Quarter: 2005Q1

REPORT INFORMATION
  Report Type: 
  Country: None (occurrence: None)
  Receive Date: 20050316
  Receipt Date: 20050228
  Transmission Date: 20050727
  Serious: Yes (Hospitalization)
  Sender: FDA-Public Use
  Company Number: EWC050242649

PATIENT
  Age: 1 Day
  Sex: Female
  Weight: 4 kg

DRUGS (1)
  1. FLUOXETINE [Suspect]

REACTIONS (13)
  - AGITATION NEONATAL [None]
  - AMNIOCENTESIS ABNORMAL [None]
  - BASE EXCESS INCREASED [None]
  - BLOOD LACTIC ACID INCREASED [None]
  - BLOOD PH DECREASED [None]
  - DRUG EXPOSURE DURING PREGNANCY [None]
  - DRUG WITHDRAWAL SYNDROME NEONATAL [None]
  - FEEDING PROBLEM IN NEWBORN [None]
  - HAEMOGLOBIN DECREASED [None]
  - HYPERTONIA NEONATAL [None]
  - NEONATAL DISORDER [None]
  - PCO2 DECREASED [None]
  - TREMOR NEONATAL [None]
